FAERS Safety Report 12682234 (Version 1)
Quarter: 2016Q3

REPORT INFORMATION
  Report Type: Spontaneous
  Country: KR (occurrence: KR)
  Receive Date: 20160824
  Receipt Date: 20160824
  Transmission Date: 20161109
  Serious: Yes (Other)
  Sender: FDA-Public Use
  Company Number: KR-AMGEN-KORSP2016111497

PATIENT
  Age: 70 Year
  Sex: Male

DRUGS (1)
  1. G-LASTA [Suspect]
     Active Substance: PEGFILGRASTIM
     Indication: PRODUCT USED FOR UNKNOWN INDICATION
     Dosage: 6 MG, UNK
     Route: 065
     Dates: start: 20151026, end: 20151026

REACTIONS (7)
  - Alanine aminotransferase increased [Unknown]
  - Hypokalaemia [Unknown]
  - Constipation [Unknown]
  - Skin lesion [Unknown]
  - Febrile neutropenia [Unknown]
  - Urinary retention [Unknown]
  - Aspartate aminotransferase increased [Unknown]

NARRATIVE: CASE EVENT DATE: 20151027
